FAERS Safety Report 6841899-9 (Version None)
Quarter: 2010Q3

REPORT INFORMATION
  Report Type: 
  Country: None (occurrence: None)
  Receive Date: 20100709
  Receipt Date: 20100625
  Transmission Date: 20110219
  Serious: Yes (Hospitalization)
  Sender: FDA-Public Use
  Company Number: RB-09447-2010

PATIENT
  Age: 31 Year
  Sex: Male

DRUGS (1)
  1. SUBUTEX [Suspect]
     Indication: PRODUCT USED FOR UNKNOWN INDICATION
     Dosage: DOSING DETAILS; INTRAVENOUS (NOT OTHERISE SPECIFIED)
     Route: 042

REACTIONS (10)
  - ESCHAR [None]
  - INTENTIONAL DRUG MISUSE [None]
  - NECROSIS [None]
  - PAIN [None]
  - PENILE NECROSIS [None]
  - SCROTAL DISORDER [None]
  - SKIN GRAFT [None]
  - SKIN ULCER [None]
  - STREPTOCOCCUS TEST POSITIVE [None]
  - WRONG TECHNIQUE IN DRUG USAGE PROCESS [None]
